FAERS Safety Report 19380649 (Version 1)
Quarter: 2021Q2

REPORT INFORMATION
  Report Type: Spontaneous
  Country: US (occurrence: US)
  Receive Date: 20210607
  Receipt Date: 20210607
  Transmission Date: 20210717
  Serious: No
  Sender: FDA-Public Use
  Company Number: US-GLAXOSMITHKLINE-US2021115949

PATIENT
  Sex: Female

DRUGS (1)
  1. TRELEGY ELLIPTA [Suspect]
     Active Substance: FLUTICASONE FUROATE\UMECLIDINIUM BROMIDE\VILANTEROL TRIFENATATE
     Indication: PRODUCT USED FOR UNKNOWN INDICATION
     Dosage: 1 PUFF(S), 1D, 200MCG?62.5
     Route: 055
     Dates: start: 20210523, end: 20210525

REACTIONS (5)
  - Dyspnoea [Unknown]
  - Dysphonia [Not Recovered/Not Resolved]
  - Vision blurred [Unknown]
  - Chest pain [Unknown]
  - Chest discomfort [Unknown]
